FAERS Safety Report 16212862 (Version 3)
Quarter: 2019Q2

REPORT INFORMATION
  Report Type: Spontaneous
  Country: ES (occurrence: ES)
  Receive Date: 20190418
  Receipt Date: 20190619
  Transmission Date: 20190711
  Serious: Yes (Other)
  Sender: FDA-Public Use
  Company Number: ES-009507513-1904ESP007680

PATIENT
  Age: 74 Year
  Sex: Male

DRUGS (3)
  1. SINEMET PLUS 25/100 MG COMPRIMIDOS [Suspect]
     Active Substance: CARBIDOPA\LEVODOPA
     Dosage: ONE TABLET IN EVERY INTAKE (AT BREAKFAST, AT LUNCH AND AT DINNER)/ONE TABLET THREE TIMES PER DAY
     Route: 048
     Dates: start: 20190412
  2. SINEMET PLUS 25/100 MG COMPRIMIDOS [Suspect]
     Active Substance: CARBIDOPA\LEVODOPA
     Indication: PARKINSON^S DISEASE
     Dosage: HALF TABLET AT BREAKFAST, HALF TABLET AT LUNCH AND HALF TABLET AT DINNER
     Route: 048
     Dates: start: 201903, end: 20190412
  3. LORAZEPAM. [Concomitant]
     Active Substance: LORAZEPAM
     Dosage: 2 TABLETS AT NIGHT (BEFORE SLEEP)
     Route: 048

REACTIONS (8)
  - Bradycardia [Recovering/Resolving]
  - Flatulence [Unknown]
  - Abdominal discomfort [Unknown]
  - Dizziness [Unknown]
  - Dyspepsia [Unknown]
  - Poor quality sleep [Unknown]
  - Blood pressure decreased [Recovering/Resolving]
  - Nervousness [Unknown]

NARRATIVE: CASE EVENT DATE: 2019
